FAERS Safety Report 7272913-7 (Version None)
Quarter: 2010Q4

REPORT INFORMATION
  Report Type: 
  Country: None (occurrence: None)
  Receive Date: 20101201
  Receipt Date: 20100118
  Transmission Date: 20110411
  Serious: Yes (Other)
  Sender: FDA-Public Use
  Company Number: 302337

PATIENT
  Age: 47 Year
  Sex: Male
  Weight: 77.1 kg

DRUGS (10)
  1. NOVOLOG [Suspect]
     Indication: TYPE 1 DIABETES MELLITUS
     Dosage: 12 IU: 4IU WITH EACH MEAL, SUBCUTANEOUS, 4IU + 3IU WITH MEALS, SUBCUTANEOUS
     Route: 058
     Dates: end: 20091220
  2. NOVOLOG [Suspect]
     Indication: TYPE 1 DIABETES MELLITUS
     Dosage: 12 IU: 4IU WITH EACH MEAL, SUBCUTANEOUS, 4IU + 3IU WITH MEALS, SUBCUTANEOUS
     Route: 058
     Dates: start: 20091221, end: 20091221
  3. LANTUS [Suspect]
     Indication: TYPE 1 DIABETES MELLITUS
     Dosage: SEE IMAGE
     Route: 058
     Dates: start: 20060101, end: 20091220
  4. LANTUS [Suspect]
     Indication: TYPE 1 DIABETES MELLITUS
     Dosage: SEE IMAGE
     Route: 058
     Dates: start: 20091221, end: 20091221
  5. LANTUS [Suspect]
     Indication: TYPE 1 DIABETES MELLITUS
     Dosage: SEE IMAGE
     Route: 058
     Dates: start: 20091222
  6. LISINOPRIL + HYDROCHLOROTIAZIDE (HYDROCHLOROTHIAZIDE, LISINOPRIL) [Concomitant]
  7. CADUET [Concomitant]
  8. DICYCLOMINE /00068601/ (DICYCLOVERINE) [Concomitant]
  9. TIMOLOL MALEATE [Concomitant]
  10. LYRICA [Concomitant]

REACTIONS (6)
  - BLOOD GLUCOSE INCREASED [None]
  - FATIGUE [None]
  - HYPOGLYCAEMIA [None]
  - INCOHERENT [None]
  - PALLOR [None]
  - SOMNOLENCE [None]
